FAERS Safety Report 5324687-4 (Version None)
Quarter: 2007Q2

REPORT INFORMATION
  Report Type: 
  Country: None (occurrence: None)
  Receive Date: 20070509
  Receipt Date: 20070424
  Transmission Date: 20071010
  Serious: Yes (Hospitalization)
  Sender: FDA-Public Use
  Company Number: PAR_01531_2007

PATIENT
  Age: 9 Year
  Sex: Female

DRUGS (2)
  1. IBUPROFEN [Suspect]
     Indication: PYREXIA
     Dosage: ORAL
     Route: 048
  2. ACETAMINOPHEN [Suspect]
     Indication: PYREXIA
     Dosage: ORAL
     Route: 048

REACTIONS (7)
  - ABDOMINAL PAIN [None]
  - HYDRONEPHROSIS [None]
  - MENINGOCOCCAL SEPSIS [None]
  - RASH [None]
  - RENAL FAILURE [None]
  - RENAL PAPILLARY NECROSIS [None]
  - URETERIC OBSTRUCTION [None]
